FAERS Safety Report 22208963 (Version 3)
Quarter: 2023Q2

REPORT INFORMATION
  Report Type: Report from Study
  Country: ES (occurrence: ES)
  Receive Date: 20230413
  Receipt Date: 20230525
  Transmission Date: 20230721
  Serious: Yes (Death, Other)
  Sender: FDA-Public Use
  Company Number: ES-ROCHE-3018144

PATIENT
  Age: 63 Year
  Sex: Male
  Weight: 82.8 kg

DRUGS (6)
  1. BEVACIZUMAB [Suspect]
     Active Substance: BEVACIZUMAB
     Indication: Non-small cell lung cancer metastatic
     Dosage: 615 MG
     Route: 065
     Dates: start: 20220111
  2. CARBOPLATIN [Suspect]
     Active Substance: CARBOPLATIN
     Indication: Non-small cell lung cancer metastatic
     Dosage: 560 MG
     Route: 065
     Dates: start: 20220111
  3. PACLITAXEL [Suspect]
     Active Substance: PACLITAXEL
     Indication: Non-small cell lung cancer metastatic
     Dosage: 350 MG
     Route: 065
     Dates: start: 20220111
  4. ATEZOLIZUMAB [Suspect]
     Active Substance: ATEZOLIZUMAB
     Indication: Non-small cell lung cancer metastatic
     Dosage: 1200 MG
     Route: 042
     Dates: start: 20220111
  5. ACETAMINOPHEN\TRAMADOL [Concomitant]
     Active Substance: ACETAMINOPHEN\TRAMADOL
     Dosage: UNK, 2X/DAY
     Dates: start: 20220131, end: 20220221
  6. ACETAMINOPHEN\TRAMADOL [Concomitant]
     Active Substance: ACETAMINOPHEN\TRAMADOL
     Dosage: UNK UNK, 3X/DAY
     Dates: start: 20220427, end: 20220608

REACTIONS (11)
  - Death [Fatal]
  - Temperature regulation disorder [Recovered/Resolved]
  - Myalgia [Recovered/Resolved]
  - Asthenia [Recovered/Resolved]
  - Nausea [Recovered/Resolved]
  - Arthralgia [Not Recovered/Not Resolved]
  - Blood pressure abnormal [Recovered/Resolved]
  - Cough [Recovered/Resolved]
  - Arthralgia [Not Recovered/Not Resolved]
  - Temperature regulation disorder [Recovered/Resolved]
  - Asthenia [Not Recovered/Not Resolved]

NARRATIVE: CASE EVENT DATE: 20220131
